FAERS Safety Report 14215943 (Version 7)
Quarter: 2023Q4

REPORT INFORMATION
  Report Type: Spontaneous
  Country: US (occurrence: US)
  Receive Date: 20171122
  Receipt Date: 20231101
  Transmission Date: 20240109
  Serious: Yes (Disabling, Other)
  Sender: FDA-Public Use
  Company Number: US-PFIZER INC-2017501057

PATIENT
  Age: 74 Year
  Sex: Female
  Weight: 78 kg

DRUGS (2)
  1. XELJANZ XR [Suspect]
     Active Substance: TOFACITINIB CITRATE
     Indication: Rheumatoid arthritis
     Dosage: 11 MG, 1X/DAY
     Route: 048
  2. PREDNISONE [Concomitant]
     Active Substance: PREDNISONE
     Indication: Rheumatoid arthritis
     Dosage: 5 MG, 2X/DAY
     Route: 048
     Dates: start: 1990

REACTIONS (8)
  - Limb operation [Unknown]
  - Cholecystectomy [Recovering/Resolving]
  - Bedridden [Unknown]
  - Nasopharyngitis [Not Recovered/Not Resolved]
  - Abdominal discomfort [Recovering/Resolving]
  - Illness [Unknown]
  - Memory impairment [Unknown]
  - Dysstasia [Unknown]

NARRATIVE: CASE EVENT DATE: 20180227
